FAERS Safety Report 16737440 (Version 2)
Quarter: 2019Q3

REPORT INFORMATION
  Report Type: Spontaneous
  Country: US (occurrence: US)
  Receive Date: 20190823
  Receipt Date: 20190912
  Transmission Date: 20191005
  Serious: Yes (Hospitalization, Other)
  Sender: FDA-Public Use
  Company Number: US-VERTEX PHARMACEUTICALS-2019-007699

PATIENT
  Sex: Female

DRUGS (1)
  1. ORKAMBI [Suspect]
     Active Substance: IVACAFTOR\LUMACAFTOR
     Indication: CYSTIC FIBROSIS
     Dosage: 2 DOSAGE FORM, BID
     Route: 048
     Dates: start: 20170822, end: 2019

REACTIONS (8)
  - Victim of sexual abuse [Unknown]
  - Coma [Recovering/Resolving]
  - Renal failure [Unknown]
  - Overdose [Unknown]
  - Pulse absent [Unknown]
  - Victim of abuse [Unknown]
  - Infective pulmonary exacerbation of cystic fibrosis [Unknown]
  - Pneumothorax [Unknown]

NARRATIVE: CASE EVENT DATE: 2019
